FAERS Safety Report 5308679-7 (Version None)
Quarter: 2007Q2

REPORT INFORMATION
  Report Type: 
  Country: None (occurrence: None)
  Receive Date: 20070426
  Receipt Date: 20070423
  Transmission Date: 20071010
  Serious: Yes (Death, Life-Threatening)
  Sender: FDA-Public Use
  Company Number: US-GLAXOSMITHKLINE-A0648400A

PATIENT
  Age: 70 Year
  Sex: Male

DRUGS (2)
  1. LAMICTAL [Suspect]
     Indication: MEDICATION ERROR
     Route: 048
     Dates: start: 20070220, end: 20070401
  2. PROAMATINE [Concomitant]

REACTIONS (2)
  - DEATH [None]
  - MEDICATION ERROR [None]
